FAERS Safety Report 9260650 (Version 1)
Quarter: 2013Q2

REPORT INFORMATION
  Report Type: Spontaneous
  Country: US (occurrence: US)
  Receive Date: 20130429
  Receipt Date: 20130429
  Transmission Date: 20140414
  Serious: Yes (Other)
  Sender: FDA-Public Use
  Company Number: US-PFIZER INC-2013133386

PATIENT
  Age: 46 Year
  Sex: Female
  Weight: 70.75 kg

DRUGS (5)
  1. LYRICA [Suspect]
     Indication: FIBROMYALGIA
     Dosage: 100 MG, UNK
     Dates: start: 2013, end: 2013
  2. LYRICA [Suspect]
     Dosage: 150 MG, UNK
     Dates: start: 2013, end: 20130423
  3. BENADRYL [Suspect]
     Indication: RASH GENERALISED
     Dosage: UNK
     Dates: start: 201304, end: 201304
  4. RESTORIL [Concomitant]
     Indication: INSOMNIA
     Dosage: UNK
  5. LOESTRIN 24 FE [Concomitant]
     Indication: CONTRACEPTION
     Dosage: 1/20 MG/UG

REACTIONS (2)
  - Rash generalised [Not Recovered/Not Resolved]
  - Somnolence [Unknown]
